FAERS Safety Report 11698713 (Version 2)
Quarter: 2015Q4

REPORT INFORMATION
  Report Type: Spontaneous
  Country: PE (occurrence: PE)
  Receive Date: 20151104
  Receipt Date: 20151116
  Transmission Date: 20160304
  Serious: Yes (Other)
  Sender: FDA-Public Use
  Company Number: PE-PFIZER INC-2015367705

PATIENT
  Age: 55 Year
  Sex: Female

DRUGS (1)
  1. XALATAN [Suspect]
     Active Substance: LATANOPROST
     Dosage: UNK

REACTIONS (5)
  - Acromegaly [Not Recovered/Not Resolved]
  - Visual impairment [Unknown]
  - Intraocular pressure increased [Unknown]
  - Pituitary tumour [Unknown]
  - Condition aggravated [Unknown]
